FAERS Safety Report 11637428 (Version 2)
Quarter: 2016Q1

REPORT INFORMATION
  Report Type: Report from Study
  Country: US (occurrence: US)
  Receive Date: 20151016
  Receipt Date: 20160325
  Transmission Date: 20160525
  Serious: Yes (Other)
  Sender: FDA-Public Use
  Company Number: US-AMGEN-USASL2015104722

PATIENT
  Age: 67 Year
  Sex: Male

DRUGS (1)
  1. ENBREL [Suspect]
     Active Substance: ETANERCEPT
     Indication: RHEUMATOID ARTHRITIS
     Dosage: 50 MG, QWK
     Route: 065
     Dates: start: 20111001

REACTIONS (10)
  - Arthritis [Unknown]
  - Condition aggravated [Unknown]
  - Pain in extremity [Unknown]
  - Drug effect decreased [Unknown]
  - Testicular disorder [Unknown]
  - Drug dose omission [Unknown]
  - Tendon disorder [Unknown]
  - Musculoskeletal pain [Unknown]
  - Surgery [Unknown]
  - Activities of daily living impaired [Unknown]

NARRATIVE: CASE EVENT DATE: 2015
